FAERS Safety Report 6268323-1 (Version None)
Quarter: 2009Q3

REPORT INFORMATION
  Report Type: 
  Country: None (occurrence: None)
  Receive Date: 20090715
  Receipt Date: 20090706
  Transmission Date: 20100115
  Serious: Yes (Other)
  Sender: FDA-Public Use
  Company Number: IT-JNJFOC-20090609603

PATIENT
  Age: 52 Year
  Sex: Female

DRUGS (5)
  1. REMICADE [Suspect]
     Indication: RHEUMATOID ARTHRITIS
     Route: 042
  2. MEDROL [Concomitant]
  3. ARAVA [Concomitant]
     Route: 048
  4. COLECALCIFEROL [Concomitant]
     Route: 048
  5. IBANDRONIC ACID [Concomitant]
     Route: 048

REACTIONS (1)
  - GRANULOMA ANNULARE [None]
